FAERS Safety Report 23888623 (Version 1)
Quarter: 2024Q2

REPORT INFORMATION
  Report Type: Spontaneous
  Country: US (occurrence: None)
  Receive Date: 20240522
  Receipt Date: 20240522
  Transmission Date: 20240716
  Serious: Yes (unspecified)
  Sender: FDA-Public Use
  Company Number: None

PATIENT
  Age: 33 Month
  Sex: Female
  Weight: 10.8 kg

DRUGS (1)
  1. MIRALAX [Suspect]
     Active Substance: POLYETHYLENE GLYCOL 3350
     Indication: Constipation
     Dates: start: 20220728, end: 20240522

REACTIONS (10)
  - Mood altered [None]
  - Abnormal behaviour [None]
  - Defiant behaviour [None]
  - Mania [None]
  - Intentional self-injury [None]
  - Contusion [None]
  - Sleep disorder [None]
  - Sleep deficit [None]
  - Obsessive thoughts [None]
  - Aggression [None]

NARRATIVE: CASE EVENT DATE: 20240419
